FAERS Safety Report 10808377 (Version 1)
Quarter: 2015Q1

REPORT INFORMATION
  Report Type: Report from Study
  Country: US (occurrence: US)
  Receive Date: 20150217
  Receipt Date: 20150217
  Transmission Date: 20150721
  Serious: No
  Sender: FDA-Public Use
  Company Number: US-ABBVIE-14K-163-1219880-00

PATIENT
  Age: 50 Year
  Sex: Female

DRUGS (5)
  1. LISINOPRIL. [Concomitant]
     Active Substance: LISINOPRIL
     Indication: PRODUCT USED FOR UNKNOWN INDICATION
  2. HUMIRA [Suspect]
     Active Substance: ADALIMUMAB
     Indication: CROHN^S DISEASE
     Dates: start: 20140303, end: 20140303
  3. HUMIRA [Suspect]
     Active Substance: ADALIMUMAB
  4. HUMIRA [Suspect]
     Active Substance: ADALIMUMAB
     Dates: start: 20140317, end: 20140317
  5. IRON [Concomitant]
     Active Substance: IRON
     Indication: MINERAL SUPPLEMENTATION

REACTIONS (6)
  - Paranasal sinus discomfort [Not Recovered/Not Resolved]
  - Pyrexia [Unknown]
  - Throat irritation [Not Recovered/Not Resolved]
  - Rhinorrhoea [Not Recovered/Not Resolved]
  - Sinus congestion [Not Recovered/Not Resolved]
  - Cough [Not Recovered/Not Resolved]

NARRATIVE: CASE EVENT DATE: 201403
